FAERS Safety Report 4802864-6 (Version None)
Quarter: 2005Q4

REPORT INFORMATION
  Report Type: 
  Country: None (occurrence: None)
  Receive Date: 20051017
  Receipt Date: 20051017
  Transmission Date: 20060501
  Serious: Yes (Life-Threatening, Hospitalization, Disabling, Congenital Anomaly, Other)
  Sender: FDA-Public Use
  Company Number: None

PATIENT
  Age: 58 Year
  Sex: Female
  Weight: 77.1115 kg

DRUGS (4)
  1. CELEBREX [Suspect]
     Indication: ARTHRITIS
     Dosage: 1 A DAY PO
     Route: 048
     Dates: start: 20040401, end: 20040608
  2. CELEBREX [Suspect]
     Indication: DIFFICULTY IN WALKING
     Dosage: 1 A DAY PO
     Route: 048
     Dates: start: 20040401, end: 20040608
  3. CELEBREX [Suspect]
     Indication: ARTHRITIS
     Dosage: 2 A DAY PO
     Route: 048
     Dates: start: 20040506, end: 20040608
  4. CELEBREX [Suspect]
     Indication: DIFFICULTY IN WALKING
     Dosage: 2 A DAY PO
     Route: 048
     Dates: start: 20040506, end: 20040608

REACTIONS (8)
  - ABSCESS [None]
  - COMA [None]
  - DIFFICULTY IN WALKING [None]
  - DYSGRAPHIA [None]
  - GASTRIC DISORDER [None]
  - HAEMORRHAGE [None]
  - PULMONARY EMBOLISM [None]
  - SPEECH DISORDER [None]
